FAERS Safety Report 6046827-4 (Version None)
Quarter: 2009Q1

REPORT INFORMATION
  Report Type: 
  Country: None (occurrence: None)
  Receive Date: 20090122
  Receipt Date: 20090116
  Transmission Date: 20090719
  Serious: Yes (Other)
  Sender: FDA-Public Use
  Company Number: A0764344A

PATIENT
  Age: 63 Year
  Sex: Male
  Weight: 76.8 kg

DRUGS (4)
  1. AVANDIA [Suspect]
     Dosage: 8MG PER DAY
     Route: 048
  2. AVANDAMET [Suspect]
     Route: 048
     Dates: end: 20060701
  3. PRAVASTATIN [Concomitant]
  4. BENICAR [Concomitant]

REACTIONS (1)
  - HEART INJURY [None]
